FAERS Safety Report 6326982-9 (Version None)
Quarter: 2009Q3

REPORT INFORMATION
  Report Type: 
  Country: None (occurrence: None)
  Receive Date: 20090821
  Receipt Date: 20090810
  Transmission Date: 20100115
  Serious: Yes (Other)
  Sender: FDA-Public Use
  Company Number: ADR12032009

PATIENT
  Age: 51 Year
  Sex: Male

DRUGS (6)
  1. PRAVASTATIN [Suspect]
     Indication: CARDIOVASCULAR EVENT PROPHYLAXIS
     Dosage: 30 MG ORAL
     Route: 048
  2. ASPIRIN [Concomitant]
  3. ATENOLOL [Concomitant]
  4. CANDESARTAN CILEXETIL [Concomitant]
  5. GAVISCON [Concomitant]
  6. TAMSULOSIN HCL [Concomitant]

REACTIONS (1)
  - ORAL MUCOSAL EXFOLIATION [None]
